FAERS Safety Report 5026572-4 (Version None)
Quarter: 2006Q2

REPORT INFORMATION
  Report Type: 
  Country: None (occurrence: None)
  Receive Date: 20060615
  Receipt Date: 20060605
  Transmission Date: 20061013
  Serious: Yes (Other)
  Sender: FDA-Public Use
  Company Number: US-ROCHE-450789

PATIENT
  Sex: Female

DRUGS (1)
  1. FUZEON [Suspect]
     Route: 058
     Dates: start: 20040615

REACTIONS (7)
  - ABDOMINAL DISTENSION [None]
  - ERYTHEMA [None]
  - FLUID RETENTION [None]
  - HYPOGLYCAEMIA [None]
  - INJECTION SITE URTICARIA [None]
  - INSULIN RESISTANCE [None]
  - MYASTHENIA GRAVIS [None]
